FAERS Safety Report 5796188-0 (Version None)
Quarter: 2008Q3

REPORT INFORMATION
  Report Type: 
  Country: None (occurrence: None)
  Receive Date: 20080701
  Receipt Date: 20080617
  Transmission Date: 20090109
  Serious: Yes (Hospitalization, Other)
  Sender: FDA-Public Use
  Company Number: US-ELI_LILLY_AND_COMPANY-US200806004449

PATIENT
  Sex: Male

DRUGS (3)
  1. ALIMTA [Suspect]
     Indication: NON-SMALL CELL LUNG CANCER
     Dosage: 500 MG/M2, OTHER
     Route: 042
     Dates: start: 20080610, end: 20080610
  2. VITAMIN B-12 [Concomitant]
     Dates: start: 20080603, end: 20080603
  3. ALOXI [Concomitant]
     Indication: NAUSEA

REACTIONS (2)
  - FEBRILE NEUTROPENIA [None]
  - HAEMORRHAGE [None]
